FAERS Safety Report 5875632-4 (Version None)
Quarter: 2008Q3

REPORT INFORMATION
  Report Type: 
  Country: None (occurrence: None)
  Receive Date: 20080909
  Receipt Date: 20080828
  Transmission Date: 20090109
  Serious: Yes (Hospitalization, Other)
  Sender: FDA-Public Use
  Company Number: US-ELI_LILLY_AND_COMPANY-US200807001227

PATIENT
  Sex: Male
  Weight: 72.562 kg

DRUGS (1)
  1. HUMATROPE [Suspect]
     Indication: PITUITARY TUMOUR
     Dosage: UNK, UNKNOWN
     Dates: start: 20020101

REACTIONS (13)
  - ASTHENIA [None]
  - BLOOD CORTISOL DECREASED [None]
  - BLOOD SODIUM DECREASED [None]
  - BRAIN INJURY [None]
  - DIARRHOEA [None]
  - DIVERTICULITIS [None]
  - HAEMOGLOBIN DECREASED [None]
  - HAEMORRHAGE [None]
  - MALAISE [None]
  - PERITONITIS [None]
  - PITUITARY TUMOUR RECURRENT [None]
  - SMALL INTESTINAL OBSTRUCTION [None]
  - WEIGHT DECREASED [None]
